FAERS Safety Report 20707863 (Version 2)
Quarter: 2022Q2

REPORT INFORMATION
  Report Type: Report from Study
  Country: US (occurrence: US)
  Receive Date: 20220414
  Receipt Date: 20220526
  Transmission Date: 20220721
  Serious: Yes (Hospitalization, Other)
  Sender: FDA-Public Use
  Company Number: US-BRISTOL-MYERS SQUIBB COMPANY-2022-018113

PATIENT
  Age: 72 Year
  Sex: Male
  Weight: 56 kg

DRUGS (8)
  1. CARBOPLATIN [Suspect]
     Active Substance: CARBOPLATIN
     Indication: Head and neck cancer
     Route: 065
  2. PACLITAXEL [Suspect]
     Active Substance: PACLITAXEL
     Indication: Head and neck cancer
     Route: 065
  3. HYDROXYUREA [Suspect]
     Active Substance: HYDROXYUREA
     Indication: Head and neck cancer
     Dosage: WEEK ON/WEEK OFF
     Route: 065
     Dates: start: 20210919, end: 20211116
  4. NIVOLUMAB [Suspect]
     Active Substance: NIVOLUMAB
     Indication: Head and neck cancer
     Route: 065
     Dates: start: 20210714, end: 20210908
  5. NIVOLUMAB [Suspect]
     Active Substance: NIVOLUMAB
     Dosage: ADJUVANT
     Route: 065
     Dates: start: 20220121
  6. NIVOLUMAB [Suspect]
     Active Substance: NIVOLUMAB
     Route: 065
     Dates: end: 20220218
  7. FILGRASTIM [Suspect]
     Active Substance: FILGRASTIM
     Indication: Head and neck cancer
     Dosage: WEEK ON/WEEK OFF
     Route: 065
     Dates: start: 20210919, end: 20211116
  8. FLUOROURACIL [Suspect]
     Active Substance: FLUOROURACIL
     Indication: Head and neck cancer
     Dosage: WEEK ON/WEEK OFF
     Route: 065
     Dates: start: 20210919, end: 20211116

REACTIONS (2)
  - Immune-mediated enterocolitis [Recovering/Resolving]
  - Diarrhoea [Recovering/Resolving]

NARRATIVE: CASE EVENT DATE: 20220323
